FAERS Safety Report 18475264 (Version 1)
Quarter: 2020Q4

REPORT INFORMATION
  Report Type: Spontaneous
  Country: CN (occurrence: CN)
  Receive Date: 20201106
  Receipt Date: 20201106
  Transmission Date: 20210114
  Serious: Yes (Hospitalization)
  Sender: FDA-Public Use
  Company Number: CN-ELI_LILLY_AND_COMPANY-CN202010012946

PATIENT
  Age: 86 Year
  Sex: Female

DRUGS (5)
  1. HUMALOG [Suspect]
     Active Substance: INSULIN LISPRO
     Indication: DIABETES MELLITUS
     Dosage: 10 U, EACH MORNING
     Route: 058
     Dates: start: 2017
  2. HUMALOG [Suspect]
     Active Substance: INSULIN LISPRO
     Dosage: 8 U, EACH EVENING
     Route: 058
     Dates: start: 2017
  3. BASALIN [Concomitant]
     Active Substance: INSULIN GLARGINE
     Indication: DIABETES MELLITUS
     Dosage: 18 U, DAILY
  4. CALCIUM [Concomitant]
     Active Substance: CALCIUM
     Indication: DIABETES MELLITUS
     Dosage: UNK
     Route: 048
  5. HUMALOG [Suspect]
     Active Substance: INSULIN LISPRO
     Dosage: 9 U, DAILY
     Route: 058
     Dates: start: 2017

REACTIONS (4)
  - Speech disorder [Unknown]
  - Blood glucose abnormal [Unknown]
  - Bone formation increased [Unknown]
  - Memory impairment [Unknown]
